FAERS Safety Report 7080979 (Version 5)
Quarter: 2012Q4

REPORT INFORMATION
  Report Type: 
  Country: CA (occurrence: CA)
  Receive Date: 20090813
  Receipt Date: 20121104
  Transmission Date: 20130627
  Serious: Yes (Other)
  Sender: FDA-Public Use
  Company Number: PHMT2007CA01487

PATIENT
  Sex: Female

DRUGS (3)
  1. SANDOSTATIN LAR [Suspect]
     Indication: CARCINOID TUMOUR
     Dosage: 30 mg, every 4 weeks
     Route: 030
     Dates: start: 20070530
  2. SANDOSTATIN LAR [Suspect]
     Dosage: 40 mg, QMO
     Dates: start: 20091103
  3. MORPHINE [Concomitant]

REACTIONS (13)
  - Thyroid function test abnormal [Unknown]
  - Headache [Unknown]
  - Skin discolouration [Unknown]
  - Sensation of pressure [Unknown]
  - Muscle spasms [Unknown]
  - Blood pressure systolic increased [Unknown]
  - Renal pain [Unknown]
  - Back pain [Unknown]
  - Hot flush [Unknown]
  - Nausea [Recovered/Resolved]
  - Dizziness [Recovered/Resolved]
  - Heart rate decreased [Unknown]
  - Hypoglycaemia [Unknown]
